FAERS Safety Report 6151589-6 (Version None)
Quarter: 2009Q2

REPORT INFORMATION
  Report Type: 
  Country: None (occurrence: None)
  Receive Date: 20090408
  Receipt Date: 20090403
  Transmission Date: 20091009
  Serious: Yes (Hospitalization, Other)
  Sender: FDA-Public Use
  Company Number: 09IN000569

PATIENT
  Age: 80 Year
  Sex: Male

DRUGS (7)
  1. RANITIDINE HYDROCHLORIDE [Suspect]
     Dosage: 150 MG, BID, ORAL
     Route: 048
  2. AMITRIPTYLINE HCL [Suspect]
     Dosage: 25 MG AT HS, ORAL; 25 MG, BID, ORAL
     Route: 048
  3. MORPHINE [Suspect]
     Indication: PAIN
     Dosage: SEE IMAGE
     Route: 048
  4. IBUPROFEN [Concomitant]
  5. ACETAMINOPHEN [Concomitant]
  6. TRAMADOL HCL [Concomitant]
  7. BISACODYL (BISACODYL) [Concomitant]

REACTIONS (5)
  - BLOOD ALBUMIN DECREASED [None]
  - INADEQUATE ANALGESIA [None]
  - OVERDOSE [None]
  - POTENTIATING DRUG INTERACTION [None]
  - SEDATION [None]
